FAERS Safety Report 7202603-8 (Version None)
Quarter: 2010Q4

REPORT INFORMATION
  Report Type: 
  Country: None (occurrence: None)
  Receive Date: 20101229
  Receipt Date: 20101222
  Transmission Date: 20110411
  Serious: Yes (Disabling, Other)
  Sender: FDA-Public Use
  Company Number: GB-JNJFOC-20101106449

PATIENT
  Sex: Female
  Weight: 140 kg

DRUGS (5)
  1. STELARA [Suspect]
     Indication: PSORIASIS
     Route: 058
  2. PREDNISOLONE [Concomitant]
     Indication: PSORIATIC ARTHROPATHY
  3. OMEPRAZOLE [Concomitant]
     Indication: DYSPEPSIA
  4. INSULIN [Concomitant]
     Indication: DIABETES MELLITUS
  5. PERINDOPRIL [Concomitant]
     Indication: HYPERTENSION

REACTIONS (1)
  - TENDONITIS [None]
